FAERS Safety Report 25270346 (Version 1)
Quarter: 2025Q2

REPORT INFORMATION
  Report Type: Spontaneous
  Country: US (occurrence: US)
  Receive Date: 20250505
  Receipt Date: 20250505
  Transmission Date: 20250716
  Serious: No
  Sender: MERCK SHARP & DOHME LLC
  Company Number: US-009507513-2274649

PATIENT
  Sex: Female

DRUGS (2)
  1. KEYTRUDA [Suspect]
     Active Substance: PEMBROLIZUMAB
  2. DUPILUMAB [Suspect]
     Active Substance: DUPILUMAB
     Route: 058

REACTIONS (1)
  - Arthralgia [Recovering/Resolving]
